FAERS Safety Report 25025807 (Version 1)
Quarter: 2025Q1

REPORT INFORMATION
  Report Type: Spontaneous
  Country: US (occurrence: US)
  Receive Date: 20250301
  Receipt Date: 20250301
  Transmission Date: 20250408
  Serious: No
  Sender: NOVO NORDISK
  Company Number: US-NOVOPROD-1237718

PATIENT
  Age: 48 Year
  Sex: Female
  Weight: 105.23 kg

DRUGS (3)
  1. VICTOZA [Suspect]
     Active Substance: LIRAGLUTIDE
     Indication: Product used for unknown indication
     Route: 058
  2. TARPEYO [Concomitant]
     Active Substance: BUDESONIDE
     Indication: Haematuria
  3. TARPEYO [Concomitant]
     Active Substance: BUDESONIDE
     Indication: Neuropathy peripheral
     Route: 048
     Dates: start: 20240323

REACTIONS (1)
  - Peripheral swelling [Unknown]
